FAERS Safety Report 12509594 (Version 1)
Quarter: 2016Q2

REPORT INFORMATION
  Report Type: Report from Study
  Country: NL (occurrence: NL)
  Receive Date: 20160629
  Receipt Date: 20160629
  Transmission Date: 20160815
  Serious: Yes (Hospitalization, Other)
  Sender: FDA-Public Use
  Company Number: NL-AMGEN-NLDSL2016081554

PATIENT
  Age: 65 Year
  Sex: Female

DRUGS (16)
  1. METOCLOPRAMIDE. [Concomitant]
     Active Substance: METOCLOPRAMIDE
     Dosage: 10 MG, QD
     Dates: start: 20160617
  2. MACROGOL [Concomitant]
     Active Substance: POLYETHYLENE GLYCOLS
     Dosage: UNK
     Dates: start: 20160412
  3. PERINDOPRIL/INDAPAMIDE [Concomitant]
     Active Substance: INDAPAMIDE\PERINDOPRIL
     Dosage: 25 MG, QD
     Dates: start: 20160403
  4. ERIBULIN [Concomitant]
     Active Substance: ERIBULIN
     Dosage: UNK
  5. ONDANSETRON [Concomitant]
     Active Substance: ONDANSETRON
     Dosage: 2 MG/ML, QD
     Dates: start: 20160616
  6. PANTOPRAZOLE [Concomitant]
     Active Substance: PANTOPRAZOLE SODIUM
     Dosage: 20 MG, QD
     Dates: start: 20160412
  7. CALCIUM CARBONATE W/COLECALCIFEROL [Concomitant]
     Active Substance: CALCIUM CARBONATE\CHOLECALCIFEROL
     Dosage: 500 MG, QD
     Dates: start: 20160403
  8. OXYCODONE [Concomitant]
     Active Substance: OXYCODONE
     Dosage: 20 MG, QD
     Dates: start: 20160616
  9. LEVETIRACETAM. [Concomitant]
     Active Substance: LEVETIRACETAM
     Dosage: 500 MG, QD
     Dates: start: 20160412
  10. TIMOLOL MALEATE W/TRAVOPROST [Concomitant]
     Dosage: 5 MG/40 UG/ML
     Dates: start: 20160403
  11. XGEVA [Suspect]
     Active Substance: DENOSUMAB
     Indication: PRODUCT USED FOR UNKNOWN INDICATION
     Dosage: 120 MG, Q3WK
     Route: 058
     Dates: start: 20130805
  12. DEXAMETHASONE. [Concomitant]
     Active Substance: DEXAMETHASONE
     Dosage: 4 MG, QD
     Dates: start: 20160619
  13. DALTEPARIN [Concomitant]
     Active Substance: DALTEPARIN
     Dosage: 2500 IE, QD
     Dates: start: 20160615
  14. PREGABALIN. [Concomitant]
     Active Substance: PREGABALIN
     Dosage: 150 MG, QD
     Dates: start: 20120824
  15. CLOPIDOGREL [Concomitant]
     Active Substance: CLOPIDOGREL BISULFATE
     Dosage: 75 MG, QD
     Dates: start: 20160412
  16. ACETYLSALICYLZUUR [Concomitant]
     Active Substance: ASPIRIN
     Dosage: 80 MG, QD
     Dates: start: 20160412

REACTIONS (10)
  - Metastases to central nervous system [Unknown]
  - Malaise [Unknown]
  - Myocardial infarction [Unknown]
  - Confusional state [Unknown]
  - Aphasia [Unknown]
  - Nausea [Unknown]
  - Decreased appetite [Unknown]
  - Breast cancer metastatic [Unknown]
  - Adrenal neoplasm [Unknown]
  - Pyrexia [Unknown]

NARRATIVE: CASE EVENT DATE: 20140509
